FAERS Safety Report 9093881 (Version 1)
Quarter: 2013Q1

REPORT INFORMATION
  Report Type: Report from Study
  Country: US (occurrence: US)
  Receive Date: 20130131
  Receipt Date: 20130131
  Transmission Date: 20140127
  Serious: No
  Sender: FDA-Public Use
  Company Number: US-ABBOTT-12P-163-1014637-00

PATIENT
  Age: 37 Year
  Sex: Female

DRUGS (1)
  1. HUMIRA [Suspect]
     Indication: CROHN^S DISEASE
     Dosage: LOADING DOSE
     Dates: start: 20121127

REACTIONS (5)
  - Sensory disturbance [Not Recovered/Not Resolved]
  - Throat irritation [Not Recovered/Not Resolved]
  - Oxygen saturation [Unknown]
  - Hypersensitivity [Not Recovered/Not Resolved]
  - Blood pressure increased [Not Recovered/Not Resolved]
